FAERS Safety Report 24888508 (Version 2)
Quarter: 2025Q1

REPORT INFORMATION
  Report Type: Spontaneous
  Country: RU (occurrence: RU)
  Receive Date: 20250127
  Receipt Date: 20250206
  Transmission Date: 20250409
  Serious: Yes (Death, Life-Threatening, Hospitalization)
  Sender: ACCORD
  Company Number: RU-MLMSERVICE-20250115-PI340118-00218-2

PATIENT
  Age: 68 Year
  Sex: Female

DRUGS (3)
  1. METHOTREXATE [Suspect]
     Active Substance: METHOTREXATE
     Indication: Rheumatoid arthritis
     Dosage: THE PATIENT TOOK MTX DAILY, INCREASING  THE DOSE TO 7 TAB
  2. AZILSARTAN MEDOXOMIL\CHLORTHALIDONE [Concomitant]
     Active Substance: AZILSARTAN MEDOXOMIL\CHLORTHALIDONE
  3. INSULIN NOS [Concomitant]
     Active Substance: INSULIN NOS

REACTIONS (9)
  - Agranulocytosis [Fatal]
  - Pancytopenia [Fatal]
  - Sepsis [Fatal]
  - Septic shock [Fatal]
  - Respiratory failure [Fatal]
  - Haemorrhagic disorder [Fatal]
  - Febrile neutropenia [Fatal]
  - Accidental overdose [Fatal]
  - Inappropriate schedule of product administration [Fatal]
